FAERS Safety Report 22147822 (Version 1)
Quarter: 2023Q1

REPORT INFORMATION
  Report Type: Spontaneous
  Country: JP (occurrence: JP)
  Receive Date: 20230328
  Receipt Date: 20230328
  Transmission Date: 20230417
  Serious: Yes (Hospitalization, Other)
  Sender: FDA-Public Use
  Company Number: JP-GILEAD-2023-0612365

PATIENT
  Age: 85 Year
  Sex: Female
  Weight: 42 kg

DRUGS (5)
  1. VEKLURY [Suspect]
     Active Substance: REMDESIVIR
     Indication: COVID-19
     Dosage: 200 MG, QD
     Route: 041
     Dates: start: 20230106, end: 20230106
  2. VEKLURY [Suspect]
     Active Substance: REMDESIVIR
     Dosage: 100 MG, QD
     Route: 041
     Dates: start: 20230107, end: 20230110
  3. AMPICILLIN SODIUM\SULBACTAM SODIUM [Concomitant]
     Active Substance: AMPICILLIN SODIUM\SULBACTAM SODIUM
     Dosage: 3 G, Q8H
     Dates: start: 20230106, end: 20230110
  4. SOLDEM 3AG [Concomitant]
     Dosage: 500 ML
     Dates: start: 20230106, end: 20230107
  5. SOLDEM 3AG [Concomitant]
     Dosage: 1000 ML
     Dates: start: 20230108, end: 20230110

REACTIONS (1)
  - Drug-induced liver injury [Recovered/Resolved]

NARRATIVE: CASE EVENT DATE: 20230111
